FAERS Safety Report 7779967-X (Version None)
Quarter: 2011Q3

REPORT INFORMATION
  Report Type: 
  Country: None (occurrence: None)
  Receive Date: 20110927
  Receipt Date: 20110805
  Transmission Date: 20111222
  Serious: Yes (Other)
  Sender: FDA-Public Use
  Company Number: US-MYLANLABS-2011S1013469

PATIENT

DRUGS (3)
  1. TACROLIMUS [Suspect]
  2. TACROLIMUS [Suspect]
  3. TACROLIMUS [Suspect]

REACTIONS (2)
  - TRANSPLANT REJECTION [None]
  - DRUG INEFFECTIVE [None]
